FAERS Safety Report 11518771 (Version 1)
Quarter: 2015Q3

REPORT INFORMATION
  Report Type: Spontaneous
  Country: US (occurrence: US)
  Receive Date: 20150917
  Receipt Date: 20150917
  Transmission Date: 20151125
  Serious: Yes (Hospitalization)
  Sender: FDA-Public Use
  Company Number: US-TEVA-594852USA

PATIENT
  Age: 27 Year
  Sex: Male

DRUGS (12)
  1. OLANZAPINE. [Suspect]
     Active Substance: OLANZAPINE
  2. FLUOXETINE [Suspect]
     Active Substance: FLUOXETINE\FLUOXETINE HYDROCHLORIDE
  3. LURASIDONE [Suspect]
     Active Substance: LURASIDONE
     Route: 065
  4. OLANZAPINE. [Suspect]
     Active Substance: OLANZAPINE
  5. FLUOXETINE [Suspect]
     Active Substance: FLUOXETINE\FLUOXETINE HYDROCHLORIDE
     Indication: DEPRESSION
     Route: 065
  6. ZIPRASIDONE. [Suspect]
     Active Substance: ZIPRASIDONE
     Route: 065
  7. VALPROIC ACID. [Suspect]
     Active Substance: VALPROIC ACID
     Indication: MOOD ALTERED
     Dosage: 1500 MILLIGRAM DAILY; EXTENDED RELEASE, NIGHTLY
     Route: 065
  8. LURASIDONE [Suspect]
     Active Substance: LURASIDONE
     Route: 065
  9. OLANZAPINE. [Suspect]
     Active Substance: OLANZAPINE
     Indication: SCHIZOPHRENIA
     Dosage: 15-20MG DAILY
     Route: 065
  10. OLANZAPINE. [Suspect]
     Active Substance: OLANZAPINE
  11. OLANZAPINE. [Suspect]
     Active Substance: OLANZAPINE
  12. OLANZAPINE. [Suspect]
     Active Substance: OLANZAPINE

REACTIONS (7)
  - Neutropenia [Recovered/Resolved]
  - Euphoric mood [Recovered/Resolved]
  - Weight increased [Recovered/Resolved]
  - Grandiosity [Recovered/Resolved]
  - Restlessness [Recovered/Resolved]
  - Psychotic disorder [Recovered/Resolved]
  - Insomnia [Recovered/Resolved]
